FAERS Safety Report 5023750-5 (Version None)
Quarter: 2006Q2

REPORT INFORMATION
  Report Type: 
  Country: None (occurrence: None)
  Receive Date: 20060606
  Receipt Date: 20060524
  Transmission Date: 20061013
  Serious: Yes (Hospitalization, Other)
  Sender: FDA-Public Use
  Company Number: LTI2006A00137

PATIENT
  Age: 35 Year
  Sex: Female

DRUGS (9)
  1. ENANTONE LP [Suspect]
     Indication: BREAST CANCER METASTATIC
     Dosage: 11.25 MG (11.25 MG, 1 IN 3 M)
     Route: 058
     Dates: start: 20041001
  2. ARIMIDEX [Concomitant]
  3. FASLODEX [Concomitant]
  4. MORPHINE SULFATE [Concomitant]
  5. ACETAMINOPHEN [Concomitant]
  6. KETOPROFEN [Concomitant]
  7. MORPHINE SULFATE [Concomitant]
  8. NAVELBINE [Concomitant]
  9. XELODA [Concomitant]

REACTIONS (5)
  - ABORTION INDUCED [None]
  - DRUG EXPOSURE DURING PREGNANCY [None]
  - MALIGNANT NEOPLASM PROGRESSION [None]
  - METASTASES TO BONE [None]
  - PREGNANCY [None]
